FAERS Safety Report 8394523-0 (Version None)
Quarter: 2012Q2

REPORT INFORMATION
  Report Type: 
  Country: None (occurrence: None)
  Receive Date: 20120530
  Receipt Date: 20120528
  Transmission Date: 20120825
  Serious: Yes (Life-Threatening, Other)
  Sender: FDA-Public Use
  Company Number: DE-JNJFOC-20120517896

PATIENT
  Age: 68 Year
  Sex: Female
  Weight: 50 kg

DRUGS (2)
  1. TRABECTEDIN [Concomitant]
     Indication: CONDITION AGGRAVATED
     Route: 042
  2. DOXORUBICIN HCL [Suspect]
     Indication: CONDITION AGGRAVATED
     Route: 042
     Dates: start: 20111019, end: 20111019

REACTIONS (11)
  - MALLORY-WEISS SYNDROME [None]
  - GENERAL PHYSICAL HEALTH DETERIORATION [None]
  - GASTROOESOPHAGEAL REFLUX DISEASE [None]
  - URINARY TRACT INFECTION [None]
  - OESOPHAGITIS [None]
  - DYSPNOEA [None]
  - PYREXIA [None]
  - PNEUMONIA KLEBSIELLA [None]
  - LEUKOPENIA [None]
  - ASPERGILLOMA [None]
  - HYPERTENSIVE CRISIS [None]
